FAERS Safety Report 9300618 (Version 4)
Quarter: 2013Q3

REPORT INFORMATION
  Report Type: Report from Study
  Country: BR (occurrence: BR)
  Receive Date: 20130521
  Receipt Date: 20130903
  Transmission Date: 20140515
  Serious: Yes (Death, Hospitalization, Other)
  Sender: FDA-Public Use
  Company Number: BR-SANOFI-AVENTIS-2013SA048610

PATIENT
  Age: 15 Year
  Sex: Male
  Weight: 45.7 kg

DRUGS (2)
  1. OXALIPLATIN [Suspect]
     Indication: OSTEOSARCOMA
     Dosage: (130 MG/M2)
     Route: 065
     Dates: start: 20121204, end: 20121204
  2. OXALIPLATIN [Suspect]
     Indication: OSTEOSARCOMA
     Dosage: (130 MG/M2)
     Route: 065
     Dates: start: 20130412, end: 20130412

REACTIONS (4)
  - Disease progression [Fatal]
  - Respiratory failure [Not Recovered/Not Resolved]
  - Respiratory disorder [Unknown]
  - Pleural effusion [Unknown]
